FAERS Safety Report 14341990 (Version 2)
Quarter: 2018Q4

REPORT INFORMATION
  Report Type: Spontaneous
  Country: FR (occurrence: FR)
  Receive Date: 20180102
  Receipt Date: 20181015
  Transmission Date: 20190204
  Serious: Yes (Congenital Anomaly, Other)
  Sender: FDA-Public Use
  Company Number: FR-MYLANLABS-2017M1083216

PATIENT
  Age: 8 Month

DRUGS (1)
  1. IBUPROFEN. [Suspect]
     Active Substance: IBUPROFEN
     Indication: PRODUCT USED FOR UNKNOWN INDICATION
     Dosage: 400 MG, SINGLE
     Route: 064

REACTIONS (5)
  - Tachycardia foetal [Recovered/Resolved]
  - Ductus arteriosus premature closure [Recovered/Resolved]
  - Medication error [Recovered/Resolved]
  - Maternal exposure during pregnancy [Recovered/Resolved]
  - Contraindicated product administered [Unknown]
